FAERS Safety Report 6037861-9 (Version None)
Quarter: 2009Q1

REPORT INFORMATION
  Report Type: 
  Country: None (occurrence: None)
  Receive Date: 20090114
  Receipt Date: 20090114
  Transmission Date: 20090719
  Serious: Yes (Other)
  Sender: FDA-Public Use
  Company Number: None

PATIENT
  Sex: Male
  Weight: 32.4322 kg

DRUGS (1)
  1. RISPERIDONE [Suspect]
     Indication: POST-TRAUMATIC STRESS DISORDER
     Dosage: 0.25MG ONCE BID PO
     Route: 048
     Dates: start: 20090102, end: 20090106

REACTIONS (2)
  - ANGER [None]
  - PRODUCT QUALITY ISSUE [None]
